FAERS Safety Report 8236415-3 (Version None)
Quarter: 2012Q1

REPORT INFORMATION
  Report Type: 
  Country: None (occurrence: None)
  Receive Date: 20120327
  Receipt Date: 20120322
  Transmission Date: 20120608
  Serious: No
  Sender: FDA-Public Use
  Company Number: US-PFIZER INC-2012075138

PATIENT
  Sex: Female
  Weight: 59 kg

DRUGS (1)
  1. PREMARIN [Suspect]
     Indication: MENOPAUSE
     Dosage: 1.25 MG, 2X/DAY
     Dates: start: 20100101, end: 20100101

REACTIONS (1)
  - DISCOMFORT [None]
